FAERS Safety Report 8972075 (Version 2)
Quarter: 2014Q2

REPORT INFORMATION
  Report Type: Spontaneous
  Country: US (occurrence: US)
  Receive Date: 20121219
  Receipt Date: 20140506
  Transmission Date: 20141212
  Serious: Yes (Hospitalization, Other)
  Sender: FDA-Public Use
  Company Number: US-009507513-1212USA006804

PATIENT
  Sex: Female
  Weight: 67.12 kg

DRUGS (7)
  1. FOSAMAX [Suspect]
     Indication: OSTEOPOROSIS
     Dosage: 10 MG, DAILY
     Route: 048
     Dates: start: 199802, end: 200609
  2. FOSAMAX [Suspect]
     Dosage: 70 MG, WEEKLY
     Route: 048
     Dates: start: 199802, end: 200609
  3. FOSAMAX [Suspect]
     Dosage: 70 MG, WEEKLY
     Route: 048
     Dates: start: 200806, end: 200811
  4. FOSAMAX [Suspect]
     Dosage: 70 MG, Q WEDNESDAYS
     Route: 048
     Dates: start: 200901, end: 20090928
  5. FOSAMAX PLUS D [Suspect]
     Indication: OSTEOPOROSIS
     Dosage: 70 MG, WEEKLY
     Route: 048
     Dates: start: 20060911, end: 20080507
  6. FOSAMAX PLUS D [Suspect]
     Dosage: 70 MG/5600 IU WEEKLY
     Route: 048
     Dates: start: 20070913
  7. ALENDRONATE SODIUM [Suspect]
     Indication: OSTEOPOROSIS
     Dosage: 70 MG, UNK
     Dates: start: 20080523

REACTIONS (32)
  - Intramedullary rod insertion [Unknown]
  - Upper limb fracture [Unknown]
  - Hysterectomy [Unknown]
  - Rib fracture [Unknown]
  - Femur fracture [Unknown]
  - Fall [Unknown]
  - Elbow operation [Unknown]
  - Hypertension [Unknown]
  - Cervical dysplasia [Unknown]
  - Blood cholesterol increased [Unknown]
  - Haematochezia [Unknown]
  - Blood urea increased [Unknown]
  - Low density lipoprotein increased [Unknown]
  - Occult blood positive [Unknown]
  - Blood glucose increased [Unknown]
  - Occult blood positive [Unknown]
  - Atrioventricular block first degree [Unknown]
  - Left ventricular hypertrophy [Unknown]
  - Myocardial ischaemia [Unknown]
  - Swelling [Unknown]
  - Osteoarthritis [Unknown]
  - Arthroscopy [Unknown]
  - Arthroscopy [Unknown]
  - Polyneuropathy [Unknown]
  - Fatigue [Unknown]
  - Fracture [Unknown]
  - Osteopenia [Unknown]
  - Fracture delayed union [Unknown]
  - Low turnover osteopathy [Unknown]
  - Fall [Unknown]
  - Asthenia [Unknown]
  - Muscle spasms [Unknown]
